FAERS Safety Report 24615019 (Version 2)
Quarter: 2024Q4

REPORT INFORMATION
  Report Type: Report from Study
  Country: US (occurrence: US)
  Receive Date: 20241113
  Receipt Date: 20241120
  Transmission Date: 20250115
  Serious: Yes (Other)
  Sender: ABBVIE
  Company Number: US-ABBVIE-5993562

PATIENT
  Age: 42 Year
  Sex: Female

DRUGS (11)
  1. RINVOQ [Suspect]
     Active Substance: UPADACITINIB
     Indication: Colitis ulcerative
     Route: 048
     Dates: start: 202309, end: 202405
  2. RINVOQ [Suspect]
     Active Substance: UPADACITINIB
     Indication: Colitis ulcerative
     Route: 048
     Dates: start: 20241016, end: 20241031
  3. RINVOQ [Suspect]
     Active Substance: UPADACITINIB
     Indication: Colitis ulcerative
     Dosage: FIRST ADMIN DATE: 2024?LAST ADMIN DATE: 2024
     Route: 048
  4. OLMESARTAN [Concomitant]
     Active Substance: OLMESARTAN
     Indication: Product used for unknown indication
  5. TOPIRAMATE [Concomitant]
     Active Substance: TOPIRAMATE
     Indication: Product used for unknown indication
  6. AZELASTINE [Concomitant]
     Active Substance: AZELASTINE
     Indication: Product used for unknown indication
  7. LEXAPRO [Concomitant]
     Active Substance: ESCITALOPRAM OXALATE
     Indication: Product used for unknown indication
  8. VITAMIN B2 [Concomitant]
     Active Substance: RIBOFLAVIN
     Indication: Product used for unknown indication
     Dosage: FORM STRENGTH: 5000 UNIT
  9. ATORVASTATIN [Concomitant]
     Active Substance: ATORVASTATIN
     Indication: Product used for unknown indication
  10. OMEPRAZOLE [Concomitant]
     Active Substance: OMEPRAZOLE
     Indication: Product used for unknown indication
  11. BUDESONIDE [Concomitant]
     Active Substance: BUDESONIDE
     Indication: Colitis ulcerative

REACTIONS (21)
  - Vertebral foraminal stenosis [Not Recovered/Not Resolved]
  - Lymphadenopathy [Unknown]
  - Cellulitis [Recovered/Resolved]
  - Escherichia test positive [Recovered/Resolved]
  - Colitis ischaemic [Unknown]
  - Hyperhidrosis [Unknown]
  - Diarrhoea haemorrhagic [Unknown]
  - CSF white blood cell count positive [Unknown]
  - Feeling abnormal [Unknown]
  - Headache [Unknown]
  - Confusional state [Unknown]
  - Joint range of motion decreased [Not Recovered/Not Resolved]
  - Abdominal pain [Unknown]
  - Mucous stools [Unknown]
  - Constipation [Unknown]
  - Malaise [Unknown]
  - Oropharyngeal pain [Unknown]
  - CSF virus identified [Unknown]
  - C-reactive protein increased [Unknown]
  - Vertebral foraminal stenosis [Unknown]
  - Red blood cell sedimentation rate increased [Unknown]

NARRATIVE: CASE EVENT DATE: 20230801
